FAERS Safety Report 9394404 (Version 1)
Quarter: 2013Q3

REPORT INFORMATION
  Report Type: Spontaneous
  Country: CA (occurrence: CA)
  Receive Date: 20130711
  Receipt Date: 20130711
  Transmission Date: 20140515
  Serious: Yes (Hospitalization)
  Sender: FDA-Public Use
  Company Number: CA-ROCHE-1245134

PATIENT
  Age: 56 Year
  Sex: Female

DRUGS (7)
  1. XELODA [Suspect]
     Indication: PRODUCT USED FOR UNKNOWN INDICATION
     Route: 065
  2. TYKERB [Suspect]
     Indication: PRODUCT USED FOR UNKNOWN INDICATION
     Route: 048
  3. TYKERB [Suspect]
     Dosage: TABLET
     Route: 048
  4. FRAGMIN [Concomitant]
     Dosage: SOLUTION INTRAVENOUS
     Route: 065
  5. HYDROCHLOROTHIAZIDE [Concomitant]
     Dosage: TABLET
     Route: 065
  6. IMOVANE [Concomitant]
     Route: 065
  7. TRAMADOL HYDROCHLORIDE [Concomitant]
     Route: 065

REACTIONS (10)
  - Cough [Unknown]
  - Fatigue [Unknown]
  - Lung disorder [Unknown]
  - Malignant neoplasm progression [Unknown]
  - Pneumonia [Unknown]
  - Radiation skin injury [Unknown]
  - Rash [Unknown]
  - Rash papular [Unknown]
  - Rash pruritic [Unknown]
  - Skin discolouration [Unknown]
